FAERS Safety Report 6706387-9 (Version None)
Quarter: 2010Q2

REPORT INFORMATION
  Report Type: 
  Country: None (occurrence: None)
  Receive Date: 20100503
  Receipt Date: 20100421
  Transmission Date: 20101027
  Serious: Yes (Hospitalization)
  Sender: FDA-Public Use
  Company Number: PHHY2010IE13290

PATIENT
  Age: 77 Year
  Sex: Female

DRUGS (5)
  1. RASILEZ [Suspect]
     Indication: HYPERTENSION
     Dosage: 150 MG
     Route: 048
     Dates: start: 20091118, end: 20100304
  2. RASILEZ [Suspect]
     Dosage: 300 MG
     Route: 048
     Dates: end: 20100304
  3. RASILEZ [Suspect]
     Dosage: UNK
  4. SYMBICORT [Concomitant]
  5. ASPIRIN [Concomitant]

REACTIONS (7)
  - CARDIAC FAILURE CONGESTIVE [None]
  - DYSPNOEA [None]
  - MALAISE [None]
  - OEDEMA PERIPHERAL [None]
  - PALLOR [None]
  - RIGHT VENTRICULAR FAILURE [None]
  - SILENT MYOCARDIAL INFARCTION [None]
